FAERS Safety Report 12641914 (Version 1)
Quarter: 2016Q3

REPORT INFORMATION
  Report Type: Spontaneous
  Country: US (occurrence: US)
  Receive Date: 20160810
  Receipt Date: 20160810
  Transmission Date: 20161109
  Serious: No
  Sender: FDA-Public Use
  Company Number: US-TARO-2016TAR00293

PATIENT
  Age: 62 Year
  Sex: Female
  Weight: 68.27 kg

DRUGS (5)
  1. UNSPECIFIED EYE DROPS [Concomitant]
     Active Substance: UNSPECIFIED INGREDIENT
     Dosage: UNK
     Route: 047
     Dates: start: 201603
  2. BURT^S BEES CHAPSTICK [Suspect]
     Active Substance: COSMETICS
     Dosage: UNK
  3. CLOBETASOL PROPIONATE CREAM USP 0.05% [Suspect]
     Active Substance: CLOBETASOL PROPIONATE
     Indication: PITYRIASIS RUBRA PILARIS
     Dosage: UNK, 2X/DAY
     Route: 061
     Dates: start: 201603, end: 20160327
  4. VITAMIN A [Concomitant]
     Active Substance: VITAMIN A
  5. ACCUTANE [Concomitant]
     Active Substance: ISOTRETINOIN

REACTIONS (3)
  - Lip swelling [Recovering/Resolving]
  - Lip pain [Recovering/Resolving]
  - Gingival pain [Recovered/Resolved]

NARRATIVE: CASE EVENT DATE: 20160327
